FAERS Safety Report 7437867-9 (Version None)
Quarter: 2011Q2

REPORT INFORMATION
  Report Type: 
  Country: None (occurrence: None)
  Receive Date: 20110426
  Receipt Date: 20110415
  Transmission Date: 20111010
  Serious: Yes (Hospitalization)
  Sender: FDA-Public Use
  Company Number: A0924029A

PATIENT
  Sex: Male
  Weight: 101 kg

DRUGS (5)
  1. INSULIN [Concomitant]
     Route: 042
     Dates: start: 20040101
  2. PROPRANOLOL [Concomitant]
     Indication: BLOOD PRESSURE ABNORMAL
     Dosage: 20MG PER DAY
     Dates: start: 20040101
  3. URSACOL [Concomitant]
     Dosage: 300MG PER DAY
     Dates: start: 20040101
  4. ARIXTRA [Suspect]
     Dosage: 7.5MG PER DAY
     Route: 042
     Dates: start: 20110219, end: 20110329
  5. ALDACTONE [Concomitant]
     Indication: BLOOD PRESSURE ABNORMAL
     Dosage: 100MG UNKNOWN
     Dates: start: 20040101

REACTIONS (5)
  - CEREBROVASCULAR ACCIDENT [None]
  - COAGULOPATHY [None]
  - MUSCULAR WEAKNESS [None]
  - SPEECH DISORDER [None]
  - OVERDOSE [None]
